FAERS Safety Report 17339455 (Version 1)
Quarter: 2020Q1

REPORT INFORMATION
  Report Type: Spontaneous
  Country: AU (occurrence: AU)
  Receive Date: 20200129
  Receipt Date: 20200129
  Transmission Date: 20200409
  Serious: Yes (Hospitalization, Other)
  Sender: FDA-Public Use
  Company Number: AU-009507513-2001AUS007368

PATIENT
  Sex: Female

DRUGS (21)
  1. ZOLOFT [Suspect]
     Active Substance: SERTRALINE HYDROCHLORIDE
  2. TRYPTANOL [Concomitant]
     Active Substance: AMITRIPTYLINE
  3. FLUOXETINE [Suspect]
     Active Substance: FLUOXETINE HYDROCHLORIDE
  4. PROTHIADEN [Suspect]
     Active Substance: DOTHIEPIN HYDROCHLORIDE
  5. RIVOTRIL [Concomitant]
     Active Substance: CLONAZEPAM
  6. ENDEP [Concomitant]
     Active Substance: AMITRIPTYLINE HYDROCHLORIDE
  7. SEREPAX [Concomitant]
     Active Substance: OXAZEPAM
  8. LOVAN [Concomitant]
     Active Substance: FLUOXETINE HYDROCHLORIDE
  9. MIRTAZAPINE. [Suspect]
     Active Substance: MIRTAZAPINE
  10. XANAX [Interacting]
     Active Substance: ALPRAZOLAM
  11. EFEXOR [Concomitant]
     Active Substance: VENLAFAXINE HYDROCHLORIDE
  12. VALIUM [Concomitant]
     Active Substance: DIAZEPAM
  13. PROZAC [Concomitant]
     Active Substance: FLUOXETINE HYDROCHLORIDE
  14. BRUFEN [Concomitant]
     Active Substance: IBUPROFEN
  15. CLONAZEPAM. [Suspect]
     Active Substance: CLONAZEPAM
  16. TEMAZE [Concomitant]
     Active Substance: TEMAZEPAM
  17. ALPRAZOLAM. [Concomitant]
     Active Substance: ALPRAZOLAM
  18. LYRICA [Suspect]
     Active Substance: PREGABALIN
  19. AROPAX [Interacting]
     Active Substance: PAROXETINE HYDROCHLORIDE
  20. ZOFRAN [Concomitant]
     Active Substance: ONDANSETRON HYDROCHLORIDE
  21. AVANZA [Concomitant]
     Active Substance: MIRTAZAPINE

REACTIONS (46)
  - Impaired driving ability [Unknown]
  - Syncope [Unknown]
  - Blood pressure increased [Unknown]
  - Hallucination, auditory [Unknown]
  - Corneal lesion [Unknown]
  - Sedation [Unknown]
  - White blood cell count decreased [Unknown]
  - Abdominal discomfort [Unknown]
  - Seizure [Unknown]
  - Depressed mood [Unknown]
  - Nephrolithiasis [Unknown]
  - Nausea [Unknown]
  - Aggression [Unknown]
  - Gastric ulcer [Unknown]
  - Surgery [Unknown]
  - Ill-defined disorder [Unknown]
  - Arthritis [Unknown]
  - Anxiety [Unknown]
  - Personality disorder [Unknown]
  - Tremor [Unknown]
  - Arthralgia [Unknown]
  - Pyrexia [Unknown]
  - Feeling abnormal [Unknown]
  - Autoimmune disorder [Unknown]
  - Anger [Unknown]
  - Menorrhagia [Unknown]
  - Amnesia [Unknown]
  - Disturbance in attention [Unknown]
  - Abnormal behaviour [Unknown]
  - Balance disorder [Unknown]
  - Irritability [Unknown]
  - Dyspnoea [Unknown]
  - Drug withdrawal syndrome [Unknown]
  - Thirst [Unknown]
  - Insomnia [Unknown]
  - Drug interaction [Unknown]
  - Drug dependence [Unknown]
  - Suicidal ideation [Unknown]
  - Confusional state [Unknown]
  - Gingival bleeding [Unknown]
  - General physical health deterioration [Unknown]
  - Muscle spasms [Unknown]
  - Fibromyalgia [Unknown]
  - Personality change [Unknown]
  - Temperature regulation disorder [Unknown]
  - Dehydration [Unknown]
